FAERS Safety Report 15265206 (Version 2)
Quarter: 2018Q3

REPORT INFORMATION
  Report Type: Report from Study
  Country: FR (occurrence: FR)
  Receive Date: 20180810
  Receipt Date: 20180830
  Transmission Date: 20181010
  Serious: Yes (Hospitalization)
  Sender: FDA-Public Use
  Company Number: FR-ACTELION-A-CH2018-176049

PATIENT
  Age: 46 Year
  Sex: Female
  Weight: 45 kg

DRUGS (13)
  1. UPTRAVI [Suspect]
     Active Substance: SELEXIPAG
     Indication: PULMONARY ARTERIAL HYPERTENSION
     Dosage: 200 ?G, QD
     Route: 048
     Dates: start: 20180712
  2. UPTRAVI [Suspect]
     Active Substance: SELEXIPAG
     Dosage: 600 ?G, QD
     Route: 048
     Dates: start: 20180714
  3. UPTRAVI [Suspect]
     Active Substance: SELEXIPAG
     Dosage: 1000 ?G, BID
     Route: 048
     Dates: start: 20180728
  4. UPTRAVI [Suspect]
     Active Substance: SELEXIPAG
     Dosage: 1400 ?G, BID
     Route: 048
     Dates: start: 20180811
  5. UPTRAVI [Suspect]
     Active Substance: SELEXIPAG
     Dosage: 1600 ?G, BID
     Route: 048
     Dates: start: 20180818
  6. AMBRISENTAN [Concomitant]
     Active Substance: AMBRISENTAN
  7. UPTRAVI [Suspect]
     Active Substance: SELEXIPAG
     Dosage: 400 ?G, QD
     Route: 048
     Dates: start: 20180713
  8. UPTRAVI [Suspect]
     Active Substance: SELEXIPAG
     Dosage: 1000 ?G, QD
     Route: 048
     Dates: start: 20180715
  9. UPTRAVI [Suspect]
     Active Substance: SELEXIPAG
     Dosage: 1400 ?G, QD
     Route: 048
     Dates: start: 20180716
  10. UPTRAVI [Suspect]
     Active Substance: SELEXIPAG
     Dosage: 1800 ?G, QD
     Route: 048
     Dates: start: 20180717
  11. UPTRAVI [Suspect]
     Active Substance: SELEXIPAG
     Dosage: 1200 ?G, BID
     Route: 048
     Dates: start: 20180804
  12. TADALAFIL [Concomitant]
     Active Substance: TADALAFIL
  13. UPTRAVI [Suspect]
     Active Substance: SELEXIPAG
     Dosage: 800 ?G, BID
     Route: 048
     Dates: start: 20180718

REACTIONS (8)
  - Diarrhoea [Not Recovered/Not Resolved]
  - Nausea [Recovered/Resolved]
  - Headache [Not Recovered/Not Resolved]
  - Vomiting [Recovered/Resolved]
  - Pyrexia [Recovered/Resolved]
  - Pain in jaw [Not Recovered/Not Resolved]
  - Hospitalisation [Unknown]
  - Drug titration error [Unknown]

NARRATIVE: CASE EVENT DATE: 20180712
